FAERS Safety Report 13059339 (Version 1)
Quarter: 2016Q4

REPORT INFORMATION
  Report Type: Spontaneous
  Country: IN (occurrence: IN)
  Receive Date: 20161223
  Receipt Date: 20161223
  Transmission Date: 20170207
  Serious: Yes (Hospitalization)
  Sender: FDA-Public Use
  Company Number: IN-MYLANLABS-2016M1056011

PATIENT

DRUGS (2)
  1. DIGOXIN. [Suspect]
     Active Substance: DIGOXIN
     Indication: PRODUCT USED FOR UNKNOWN INDICATION
     Route: 065
  2. FUROSEMIDE. [Concomitant]
     Active Substance: FUROSEMIDE
     Indication: PRODUCT USED FOR UNKNOWN INDICATION
     Route: 065

REACTIONS (8)
  - Toxicity to various agents [Recovering/Resolving]
  - Sinus node dysfunction [Recovering/Resolving]
  - Nodal rhythm [Recovering/Resolving]
  - Extrasystoles [Recovering/Resolving]
  - Electrocardiogram PR shortened [Recovering/Resolving]
  - Cardiomegaly [Unknown]
  - Vomiting [Unknown]
  - Electrocardiogram abnormal [Recovering/Resolving]
